FAERS Safety Report 10273647 (Version 2)
Quarter: 2014Q3

REPORT INFORMATION
  Report Type: Spontaneous
  Country: BR (occurrence: BR)
  Receive Date: 20140702
  Receipt Date: 20140730
  Transmission Date: 20150326
  Serious: Yes (Other)
  Sender: FDA-Public Use
  Company Number: PHHY2014BR081401

PATIENT
  Age: 65 Year
  Sex: Female

DRUGS (4)
  1. DIOVAN [Suspect]
     Active Substance: VALSARTAN
     Indication: HYPERTENSION
     Dosage: 40 MG, UNK
  2. DIOVAN [Suspect]
     Active Substance: VALSARTAN
     Dosage: 2 TABLETS (80 MG), UNK
     Route: 048
     Dates: start: 20140627
  3. DIOVAN [Suspect]
     Active Substance: VALSARTAN
     Dosage: 1 TABLET (80 MG) DAILY
     Route: 048
     Dates: end: 20140629
  4. DIOVAN [Suspect]
     Active Substance: VALSARTAN
     Dosage: 4 TABLETS (80 MG), UNK
     Route: 048
     Dates: start: 20140628

REACTIONS (5)
  - Heart rate decreased [Not Recovered/Not Resolved]
  - Headache [Recovering/Resolving]
  - Malaise [Not Recovered/Not Resolved]
  - Drug ineffective [Unknown]
  - Blood pressure increased [Unknown]

NARRATIVE: CASE EVENT DATE: 20140628
